FAERS Safety Report 7485397-0 (Version None)
Quarter: 2011Q2

REPORT INFORMATION
  Report Type: 
  Country: None (occurrence: None)
  Receive Date: 20110517
  Receipt Date: 20110509
  Transmission Date: 20111010
  Serious: Yes (Life-Threatening, Hospitalization, Other)
  Sender: FDA-Public Use
  Company Number: US-B.I. PHARMACEUTICALS,INC./RIDGEFIELD-2011-BP-11407BP

PATIENT
  Age: 74 Year
  Sex: Male
  Weight: 89.8 kg

DRUGS (1)
  1. PRADAXA [Suspect]
     Indication: ATRIAL FIBRILLATION
     Dosage: 300 MG
     Dates: start: 20100101, end: 20110414

REACTIONS (17)
  - RENAL FAILURE ACUTE [None]
  - HYPOVOLAEMIA [None]
  - HAEMORRHAGE [None]
  - NEOPLASM MALIGNANT [None]
  - GASTROINTESTINAL HAEMORRHAGE [None]
  - HYPOTENSION [None]
  - OVERDOSE [None]
  - OBSTRUCTIVE UROPATHY [None]
  - OCCULT BLOOD POSITIVE [None]
  - COAGULOPATHY [None]
  - CARDIAC DISORDER [None]
  - PERICARDIAL EFFUSION [None]
  - PANCYTOPENIA [None]
  - METABOLIC ACIDOSIS [None]
  - ANAEMIA [None]
  - TROPONIN [None]
  - LUNG INFILTRATION [None]
